FAERS Safety Report 10005207 (Version 2)
Quarter: 2014Q1

REPORT INFORMATION
  Report Type: Spontaneous
  Country: US (occurrence: US)
  Receive Date: 20140312
  Receipt Date: 20140312
  Transmission Date: 20141002
  Serious: No
  Sender: FDA-Public Use
  Company Number: US-INCYTE CORPORATION-2013IN002940

PATIENT
  Sex: Male
  Weight: 73.02 kg

DRUGS (4)
  1. JAKAFI [Suspect]
     Indication: MYELOFIBROSIS
     Dosage: 15 MG, BID
     Route: 048
     Dates: start: 20130628, end: 2013
  2. JAKAFI [Suspect]
     Dosage: 15 MG, BID
     Route: 048
     Dates: start: 2013
  3. HYDREA [Suspect]
     Dosage: UNKNOWN
     Route: 065
  4. ASA [Concomitant]

REACTIONS (2)
  - Pyrexia [Recovered/Resolved]
  - Drug dose omission [Unknown]
